FAERS Safety Report 10577657 (Version 4)
Quarter: 2016Q4

REPORT INFORMATION
  Report Type: Spontaneous
  Country: US (occurrence: US)
  Receive Date: 20141111
  Receipt Date: 20161028
  Transmission Date: 20170206
  Serious: No
  Sender: FDA-Public Use
  Company Number: US-PFIZER INC-2014308094

PATIENT
  Age: 77 Year
  Sex: Female

DRUGS (19)
  1. LETAIRIS [Concomitant]
     Active Substance: AMBRISENTAN
     Dosage: 10 MG, 1X/DAY
     Route: 048
  2. NEXIUM [Concomitant]
     Active Substance: ESOMEPRAZOLE MAGNESIUM
     Dosage: 40 MG, 1X/DAY
     Route: 048
  3. CITRACAL [Concomitant]
     Active Substance: CALCIUM CITRATE
     Dosage: 1200 MG, 1X/DAY
     Route: 048
  4. LETAIRIS [Concomitant]
     Active Substance: AMBRISENTAN
     Dosage: 5 MG, 1X/DAY
     Route: 048
     Dates: start: 20130116
  5. ASA [Concomitant]
     Active Substance: ASPIRIN
     Dosage: 8 MG, 1X/DAY
     Route: 048
  6. METHOCARBAMOL. [Concomitant]
     Active Substance: METHOCARBAMOL
     Dosage: 750 MG, EVERY 4 HRS
     Route: 048
  7. ESTRADIOL. [Concomitant]
     Active Substance: ESTRADIOL
     Dosage: 1 MG, WEEKLY
     Route: 048
  8. AMLODIPINE [Concomitant]
     Active Substance: AMLODIPINE BESYLATE
     Dosage: 2.5 MG, 1X/DAY
     Route: 048
  9. SPIRONOLACTONE. [Concomitant]
     Active Substance: SPIRONOLACTONE
     Dosage: 12.5 MG, 1X/DAY (25MG, 1/2 TAB PO QD)
     Route: 048
  10. POTASSIUM [Concomitant]
     Active Substance: POTASSIUM
     Dosage: 8 MEQ, 1X/DAY
     Route: 048
  11. FIORICET WITH CODEINE [Concomitant]
     Active Substance: ACETAMINOPHEN\BUTALBITAL\CAFFEINE\CODEINE PHOSPHATE
     Dosage: 1 DF, EVERY 4 HRS (BUTALBITAL: 300MG, CAFFEINE: 50MG, CODEINE PHOSPHATE: 40MG, PARACETAMOL: 30MG)
     Route: 048
  12. ANORO ELLIPTA [Concomitant]
     Active Substance: UMECLIDINIUM BROMIDE\VILANTEROL TRIFENATATE
     Dosage: 1 DF, 1X/DAY (UMECLIDINIUM BROMIDE: 62.5MCG, VILANTEROL TRIFENATATE: 25MCG) (INHALE ONE PUFF)
     Route: 055
  13. ZOFRAN [Concomitant]
     Active Substance: ONDANSETRON HYDROCHLORIDE
     Dosage: 4 MG, AS NEEDED (ORALLY PRN/Q8HRS, 2 WEEK)
     Route: 048
  14. REVATIO [Suspect]
     Active Substance: SILDENAFIL CITRATE
     Indication: PULMONARY ARTERIAL HYPERTENSION
     Dosage: 20 MG, 3X/DAY
     Route: 048
     Dates: start: 201212
  15. CHLOR [Concomitant]
     Dosage: 16 MG, 1X/DAY
     Route: 048
  16. SYNTHROID [Concomitant]
     Active Substance: LEVOTHYROXINE SODIUM
     Dosage: 0.1 MG, 1X/DAY
     Route: 048
  17. VITAMIN D3 [Concomitant]
     Active Substance: CHOLECALCIFEROL
     Dosage: 2000 IU, 1X/DAY
  18. FISH OIL [Concomitant]
     Active Substance: FISH OIL
     Dosage: 1000 MG, 1X/DAY
     Route: 048
  19. VITAMIN D3 [Concomitant]
     Active Substance: CHOLECALCIFEROL
     Dosage: 400 IU, 1X/DAY
     Route: 048

REACTIONS (3)
  - Condition aggravated [Unknown]
  - Pharyngeal disorder [Not Recovered/Not Resolved]
  - Dyspnoea [Unknown]
